FAERS Safety Report 9829998 (Version 1)
Quarter: 2014Q1

REPORT INFORMATION
  Report Type: Report from Study
  Country: IN (occurrence: IN)
  Receive Date: 20140120
  Receipt Date: 20140120
  Transmission Date: 20141002
  Serious: Yes (Death, Hospitalization)
  Sender: FDA-Public Use
  Company Number: PHHY2014IN005280

PATIENT
  Age: 73 Year
  Sex: Male

DRUGS (3)
  1. EXELON PATCH [Suspect]
     Indication: DEMENTIA ALZHEIMER^S TYPE
     Dosage: 9.5 MG, (10 CM2), DAILY
     Route: 062
     Dates: start: 20120417
  2. SYNDOPA [Concomitant]
     Indication: PARKINSON^S DISEASE
     Dosage: UNK UKN, DAILY
     Route: 048
     Dates: start: 20120417
  3. UBI-Q [Concomitant]
     Indication: HYPOVITAMINOSIS
     Dosage: UNK UKN, DAILY
     Route: 048
     Dates: start: 20120417

REACTIONS (2)
  - Death [Fatal]
  - Decreased appetite [Unknown]
